FAERS Safety Report 24408560 (Version 1)
Quarter: 2024Q4

REPORT INFORMATION
  Report Type: Spontaneous
  Country: US (occurrence: US)
  Receive Date: 20241007
  Receipt Date: 20241007
  Transmission Date: 20250115
  Serious: No
  Sender: CSL BEHRING
  Company Number: US-BEH-2024180721

PATIENT
  Age: 70 Year
  Sex: Female

DRUGS (35)
  1. HIZENTRA [Suspect]
     Active Substance: HUMAN IMMUNOGLOBULIN G
     Indication: Immunodeficiency common variable
     Dosage: 13 G, QW
     Route: 058
     Dates: start: 2019
  2. CLARITHROMYCIN [Concomitant]
     Active Substance: CLARITHROMYCIN
  3. CLARITIN [Concomitant]
     Active Substance: LORATADINE
  4. DEXAMETHASONE [Concomitant]
     Active Substance: DEXAMETHASONE
     Dosage: 6 MG
  5. AUGMENTIN [Concomitant]
     Active Substance: AMOXICILLIN\CLAVULANATE POTASSIUM
  6. PREDNISONE [Concomitant]
     Active Substance: PREDNISONE
  7. BETAMETHASONE CLOTRIMAZOLE [Concomitant]
     Active Substance: BETAMETHASONE DIPROPIONATE\CLOTRIMAZOLE
  8. NYSTATIN\TRIAMCINOLONE [Concomitant]
     Active Substance: NYSTATIN\TRIAMCINOLONE
  9. PROTONIX [Concomitant]
     Active Substance: PANTOPRAZOLE SODIUM
  10. DOXYCYCLINE [Concomitant]
     Active Substance: DOXYCYCLINE
  11. MUCINEX [Concomitant]
     Active Substance: GUAIFENESIN
  12. TYLENOL WITH CODEINE [Concomitant]
     Active Substance: ACETAMINOPHEN\CODEINE PHOSPHATE
  13. AZITHROMYCIN [Concomitant]
     Active Substance: AZITHROMYCIN
     Dosage: 500 MG
  14. BUDESONIDE [Concomitant]
     Active Substance: BUDESONIDE
  15. IPRATROPIUM BROMIDE [Concomitant]
     Active Substance: IPRATROPIUM BROMIDE
  16. LOSARTAN [Concomitant]
     Active Substance: LOSARTAN
     Dosage: 100 MG
  17. VITAMINS [Concomitant]
     Active Substance: VITAMINS
  18. NORVASC [Concomitant]
     Active Substance: AMLODIPINE BESYLATE
     Dosage: 10 MG
  19. PERFOROMIST [Concomitant]
     Active Substance: FORMOTEROL FUMARATE DIHYDRATE
  20. SUCRALFATE [Concomitant]
     Active Substance: SUCRALFATE
     Dosage: 1 G
  21. VITAMIN C [Concomitant]
     Active Substance: ASCORBIC ACID
     Dosage: 1000 MG
  22. VITAMIN D [Concomitant]
     Active Substance: VITAMIN D NOS
  23. WELLBUTRIN [Concomitant]
     Active Substance: BUPROPION HYDROCHLORIDE
     Dosage: 150 MG
  24. ASPIRIN [Concomitant]
     Active Substance: ASPIRIN
     Dosage: 81 MG
  25. ATIVAN [Concomitant]
     Active Substance: LORAZEPAM
  26. ATORVASTATIN [Concomitant]
     Active Substance: ATORVASTATIN
  27. DALIRESP [Concomitant]
     Active Substance: ROFLUMILAST
     Dosage: 500 UNK
  28. FOLIC ACID [Concomitant]
     Active Substance: FOLIC ACID
     Dosage: 1 MG
  29. GABAPENTIN [Concomitant]
     Active Substance: GABAPENTIN
  30. IBUPROFEN [Concomitant]
     Active Substance: IBUPROFEN
  31. KEPPRA [Concomitant]
     Active Substance: LEVETIRACETAM
     Dosage: 1000 MG
  32. OMEPRAZOLE [Concomitant]
     Active Substance: OMEPRAZOLE
     Dosage: 40 MG
  33. SERTRALINE [Concomitant]
     Active Substance: SERTRALINE HYDROCHLORIDE
  34. SPIRIVA [Concomitant]
     Active Substance: TIOTROPIUM BROMIDE MONOHYDRATE
     Dosage: 18 MCG
  35. TYLENOL [Concomitant]
     Active Substance: ACETAMINOPHEN
     Dosage: 325 MG

REACTIONS (3)
  - Infusion site haemorrhage [Unknown]
  - Sciatica [Unknown]
  - Peripheral swelling [Unknown]

NARRATIVE: CASE EVENT DATE: 20240901
